FAERS Safety Report 4380136-4 (Version None)
Quarter: 2004Q2

REPORT INFORMATION
  Report Type: 
  Country: None (occurrence: None)
  Receive Date: 20040616
  Receipt Date: 20040601
  Transmission Date: 20050107
  Serious: Yes (Hospitalization, Other)
  Sender: FDA-Public Use
  Company Number: 2004S1001004

PATIENT
  Age: 60 Year
  Sex: Female
  Weight: 70.7611 kg

DRUGS (14)
  1. CAELYX (LIPOSOMAL DOXORUBICIN) INJECTABLE SOLUTION [Suspect]
     Indication: PERITONEAL CARCINOMA
     Dosage: 30 MG/M^2 INTRAVENOUS
     Route: 042
     Dates: start: 20040223, end: 20040223
  2. CAELYX (LIPOSOMAL DOXORUBICIN) INJECTABLE SOLUTION [Suspect]
     Indication: PERITONEAL CARCINOMA
     Dosage: 30 MG/M^2 INTRAVENOUS
     Route: 042
     Dates: start: 20040407, end: 20040407
  3. PACLITAXEL [Suspect]
     Indication: PERITONEAL CARCINOMA
     Dosage: 175 MG/M^2 INTRAVENOUS
     Route: 042
     Dates: start: 20040223, end: 20040223
  4. PACLITAXEL [Suspect]
     Indication: PERITONEAL CARCINOMA
     Dosage: 175 MG/M^2 INTRAVENOUS
     Route: 042
     Dates: start: 20040317, end: 20040317
  5. PACLITAXEL [Suspect]
     Indication: PERITONEAL CARCINOMA
     Dosage: 175 MG/M^2 INTRAVENOUS
     Route: 042
     Dates: start: 20040407, end: 20040407
  6. PACLITAXEL [Suspect]
     Indication: PERITONEAL CARCINOMA
     Dosage: 175 MG/M^2 INTRAVENOUS
     Route: 042
     Dates: start: 20040512, end: 20040512
  7. CARBOPLATIN [Suspect]
     Indication: PERITONEAL CARCINOMA
     Dosage: 709 MG INTRAVENOUS
     Route: 042
     Dates: start: 20040227, end: 20040227
  8. CARBOPLATIN [Suspect]
     Indication: PERITONEAL CARCINOMA
     Dosage: 709 MG INTRAVENOUS
     Route: 042
     Dates: start: 20040317, end: 20040317
  9. CARBOPLATIN [Suspect]
     Indication: PERITONEAL CARCINOMA
     Dosage: 709 MG INTRAVENOUS
     Route: 042
     Dates: start: 20040407, end: 20040407
  10. CARBOPLATIN [Suspect]
     Indication: PERITONEAL CARCINOMA
     Dosage: 709 MG INTRAVENOUS
     Route: 042
     Dates: start: 20040512, end: 20040512
  11. SIMVASTATIN, TROPISETRON [Concomitant]
  12. DEXAMETHASONE [Concomitant]
  13. RANITIDINE [Concomitant]
  14. DIPHENHYDRAMINE HCL [Concomitant]

REACTIONS (13)
  - ATELECTASIS [None]
  - CHILLS [None]
  - DEHYDRATION [None]
  - DIARRHOEA [None]
  - DRUG INEFFECTIVE [None]
  - ESCHERICHIA URINARY TRACT INFECTION [None]
  - FEBRILE NEUTROPENIA [None]
  - MARKEDLY REDUCED DIETARY INTAKE [None]
  - PLATELET COUNT DECREASED [None]
  - PLEURAL EFFUSION [None]
  - RASH MACULO-PAPULAR [None]
  - STAPHYLOCOCCAL BACTERAEMIA [None]
  - VOMITING [None]
